FAERS Safety Report 22328646 (Version 1)
Quarter: 2023Q2

REPORT INFORMATION
  Report Type: Spontaneous
  Country: US (occurrence: US)
  Receive Date: 20230517
  Receipt Date: 20230517
  Transmission Date: 20230721
  Serious: No
  Sender: FDA-Public Use
  Company Number: US-RADIUS HEALTH INC.-2023US000381

PATIENT
  Sex: Female

DRUGS (16)
  1. TYMLOS [Suspect]
     Active Substance: ABALOPARATIDE
     Indication: Senile osteoporosis
     Dosage: 80 MCG, QD
     Route: 058
  2. TYMLOS [Suspect]
     Active Substance: ABALOPARATIDE
     Dosage: HALF DOSE, QD
     Route: 058
  3. ALLERFEX [Concomitant]
     Indication: Product used for unknown indication
  4. MURO 128 [Concomitant]
     Active Substance: SODIUM CHLORIDE
     Indication: Product used for unknown indication
  5. MINERALS\VITAMINS [Concomitant]
     Active Substance: MINERALS\VITAMINS
     Indication: Product used for unknown indication
  6. VITAMIN B-COMPLEX [Concomitant]
     Active Substance: DEXPANTHENOL\NIACINAMIDE\PYRIDOXINE HYDROCHLORIDE\RIBOFLAVIN 5^-PHOSPHATE SODIUM\THIAMINE HYDROCHLOR
     Indication: Product used for unknown indication
  7. VITAMIN D3 [Concomitant]
     Active Substance: CHOLECALCIFEROL
     Indication: Product used for unknown indication
  8. DIFLUPREDNATE [Concomitant]
     Active Substance: DIFLUPREDNATE
     Indication: Product used for unknown indication
  9. TAMSULOSIN HYDROCHLORIDE [Concomitant]
     Active Substance: TAMSULOSIN HYDROCHLORIDE
     Indication: Product used for unknown indication
  10. GEMTESA [Concomitant]
     Active Substance: VIBEGRON
     Indication: Product used for unknown indication
  11. AZITHROMYCIN [Concomitant]
     Active Substance: AZITHROMYCIN
     Indication: Product used for unknown indication
  12. DORZOLAMIDE [Concomitant]
     Active Substance: DORZOLAMIDE
     Indication: Product used for unknown indication
     Dosage: UNK
  13. EPLERENONE [Concomitant]
     Active Substance: EPLERENONE
     Indication: Product used for unknown indication
  14. XIIDRA [Concomitant]
     Active Substance: LIFITEGRAST
     Indication: Product used for unknown indication
  15. PIROXICAM [Concomitant]
     Active Substance: PIROXICAM
     Indication: Product used for unknown indication
  16. CEPHALEXIN [Concomitant]
     Active Substance: CEPHALEXIN
     Indication: Product used for unknown indication

REACTIONS (3)
  - Illness [Unknown]
  - Intentional product misuse [Unknown]
  - Incorrect product administration duration [Unknown]
